FAERS Safety Report 7418702-1 (Version None)
Quarter: 2011Q2

REPORT INFORMATION
  Report Type: 
  Country: None (occurrence: None)
  Receive Date: 20110407
  Receipt Date: 20110330
  Transmission Date: 20111010
  Serious: Yes (Life-Threatening, Hospitalization)
  Sender: FDA-Public Use
  Company Number: TAJPN-11-0272

PATIENT
  Age: 58 Year
  Sex: Female
  Weight: 37 kg

DRUGS (4)
  1. ABRAXANE (PACLITAXEL) [Suspect]
     Indication: BREAST CANCER METASTATIC
     Dosage: (272 MG)
     Dates: start: 20101217, end: 20101217
  2. DECADRON [Concomitant]
  3. EMEND [Concomitant]
  4. POLARAMINE [Concomitant]

REACTIONS (8)
  - NEUTROPHIL COUNT DECREASED [None]
  - DEHYDRATION [None]
  - BLOOD UREA INCREASED [None]
  - WHITE BLOOD CELL COUNT DECREASED [None]
  - HAEMOGLOBIN DECREASED [None]
  - BLOOD CREATININE INCREASED [None]
  - BLOOD ALBUMIN DECREASED [None]
  - C-REACTIVE PROTEIN INCREASED [None]
